FAERS Safety Report 7891811-9 (Version None)
Quarter: 2011Q4

REPORT INFORMATION
  Report Type: 
  Country: None (occurrence: None)
  Receive Date: 20111103
  Receipt Date: 20110810
  Transmission Date: 20120403
  Serious: No
  Sender: FDA-Public Use
  Company Number: US-AMGEN-USASP2011040643

PATIENT
  Sex: Female

DRUGS (5)
  1. RANITIDINE [Concomitant]
     Dosage: 150 MG, UNK
  2. PLAVIX [Concomitant]
     Dosage: 75 MG, UNK
  3. ASPIRIN [Concomitant]
     Dosage: 81 MG, UNK
  4. ENBREL [Suspect]
     Indication: PRODUCT USED FOR UNKNOWN INDICATION
     Dosage: 50 MG, 2 TIMES/WK
     Route: 058
  5. SIMVASTATIN [Concomitant]
     Dosage: 20 MG, UNK

REACTIONS (1)
  - INJECTION SITE HAEMATOMA [None]
